FAERS Safety Report 10294303 (Version 2)
Quarter: 2014Q3

REPORT INFORMATION
  Report Type: Spontaneous
  Country: GH (occurrence: GH)
  Receive Date: 20140711
  Receipt Date: 20140711
  Transmission Date: 20150326
  Serious: Yes (Death, Other)
  Sender: FDA-Public Use
  Company Number: GH-ROCHE-1305173

PATIENT
  Age: 31 Year
  Sex: Female

DRUGS (6)
  1. DOXORUBICINE [Concomitant]
     Active Substance: DOXORUBICIN
  2. PREDNISONE. [Concomitant]
     Active Substance: PREDNISONE
  3. MABTHERA [Suspect]
     Active Substance: RITUXIMAB
     Indication: DIFFUSE LARGE B-CELL LYMPHOMA
     Route: 042
  4. CYCLOPHOSPHAMIDE. [Concomitant]
     Active Substance: CYCLOPHOSPHAMIDE
     Indication: DIFFUSE LARGE B-CELL LYMPHOMA
  5. VINCRISTINE [Concomitant]
     Active Substance: VINCRISTINE
  6. ETOPOSIDE. [Concomitant]
     Active Substance: ETOPOSIDE

REACTIONS (3)
  - Anaemia [Fatal]
  - Ulcer [Unknown]
  - Diffuse large B-cell lymphoma recurrent [Unknown]
